FAERS Safety Report 7368936-X (Version None)
Quarter: 2011Q1

REPORT INFORMATION
  Report Type: 
  Country: None (occurrence: None)
  Receive Date: 20110308
  Receipt Date: 20100315
  Transmission Date: 20110831
  Serious: Yes (Hospitalization, Other)
  Sender: FDA-Public Use
  Company Number: 2010SP015904

PATIENT
  Age: 25 Year
  Sex: Female
  Weight: 45.3597 kg

DRUGS (8)
  1. ASPIRIN [Suspect]
     Indication: CEREBROVASCULAR ACCIDENT
  2. ENOXAPARIN [Suspect]
     Indication: THROMBOSIS
     Dates: start: 20070301
  3. CLOPIDOGREL [Suspect]
     Indication: THROMBOSIS
     Dates: start: 20070301
  4. NUVARING [Suspect]
     Indication: CONTRACEPTION
     Dates: start: 20050101, end: 20070301
  5. SUMATRIPTAN [Concomitant]
  6. NAPROXEN [Concomitant]
  7. ACETAMINOPHEN [Concomitant]
  8. ADVIL LIQUI-GELS [Concomitant]

REACTIONS (31)
  - HEART RATE IRREGULAR [None]
  - SCOLIOSIS [None]
  - CONTUSION [None]
  - ANAEMIA [None]
  - DIARRHOEA [None]
  - DYSARTHRIA [None]
  - ANXIETY [None]
  - ATRIAL SEPTAL DEFECT [None]
  - VAGINAL DISCHARGE [None]
  - HYPERTENSION [None]
  - VOMITING [None]
  - SINUS ARRHYTHMIA [None]
  - EMBOLIC STROKE [None]
  - CEREBROVASCULAR ACCIDENT [None]
  - THROMBOSIS [None]
  - POST PROCEDURAL HAEMORRHAGE [None]
  - SCRATCH [None]
  - NAUSEA [None]
  - HEMIPARESIS [None]
  - CRANIAL NERVE DISORDER [None]
  - URINARY TRACT INFECTION [None]
  - MIGRAINE [None]
  - BREAST PROSTHESIS USER [None]
  - CONFUSIONAL STATE [None]
  - ROAD TRAFFIC ACCIDENT [None]
  - UTERINE HAEMORRHAGE [None]
  - RETROPERITONEAL HAEMORRHAGE [None]
  - SMEAR CERVIX ABNORMAL [None]
  - DRUG SCREEN POSITIVE [None]
  - VULVOVAGINAL PAIN [None]
  - HYPERSENSITIVITY [None]
